FAERS Safety Report 10586945 (Version 1)
Quarter: 2014Q4

REPORT INFORMATION
  Report Type: Report from Study
  Country: US (occurrence: US)
  Receive Date: 20141117
  Receipt Date: 20141117
  Transmission Date: 20150529
  Serious: Yes (Other)
  Sender: FDA-Public Use
  Company Number: PHEH2014US022783

PATIENT
  Sex: Male

DRUGS (1)
  1. NEORAL [Suspect]
     Active Substance: CYCLOSPORINE
     Indication: HEART TRANSPLANT
     Dosage: 175 MG, (100 MG IN MORNING AND 75 MG IN EVENING)
     Route: 048

REACTIONS (5)
  - Arthritis [Unknown]
  - Prostate cancer [Unknown]
  - Gait disturbance [Not Recovered/Not Resolved]
  - Compression fracture [Unknown]
  - Intervertebral disc degeneration [Unknown]
